FAERS Safety Report 9783703 (Version 1)
Quarter: 2013Q4

REPORT INFORMATION
  Report Type: Spontaneous
  Country: US (occurrence: US)
  Receive Date: 20131226
  Receipt Date: 20131226
  Transmission Date: 20140711
  Serious: No
  Sender: FDA-Public Use
  Company Number: US-PFIZER INC-2013366590

PATIENT
  Sex: 0

DRUGS (1)
  1. GABAPENTIN [Suspect]
     Dosage: TWO 300 MG CAPSULES, 3X/DAY

REACTIONS (5)
  - Neuropathy peripheral [Unknown]
  - Malaise [Unknown]
  - Paraesthesia [Unknown]
  - Hypoaesthesia [Unknown]
  - Product quality issue [Unknown]
